FAERS Safety Report 24714767 (Version 1)
Quarter: 2024Q4

REPORT INFORMATION
  Report Type: Spontaneous
  Country: RO (occurrence: RO)
  Receive Date: 20241210
  Receipt Date: 20241210
  Transmission Date: 20250114
  Serious: Yes (Other)
  Sender: VIIV
  Company Number: RO-VIIV HEALTHCARE ULC-RO2024EME151507

PATIENT

DRUGS (4)
  1. COMBIVIR [Suspect]
     Active Substance: LAMIVUDINE\ZIDOVUDINE
     Indication: HIV infection
     Dosage: UNK UNK, BID
     Dates: start: 20040101
  2. EFAVIRENZ [Concomitant]
     Active Substance: EFAVIRENZ
     Indication: Product used for unknown indication
     Dosage: UNK
  3. LOPINAVIR [Concomitant]
     Active Substance: LOPINAVIR
     Indication: Product used for unknown indication
     Dosage: UNK
  4. RITONAVIR [Concomitant]
     Active Substance: RITONAVIR
     Indication: Product used for unknown indication
     Dosage: UNK

REACTIONS (6)
  - Goitre [Not Recovered/Not Resolved]
  - Dyslipidaemia [Not Recovered/Not Resolved]
  - Gallbladder cholesterolosis [Not Recovered/Not Resolved]
  - Hepatic steatosis [Not Recovered/Not Resolved]
  - Obesity [Not Recovered/Not Resolved]
  - Premature menopause [Not Recovered/Not Resolved]

NARRATIVE: CASE EVENT DATE: 20190101
